FAERS Safety Report 17604101 (Version 1)
Quarter: 2020Q1

REPORT INFORMATION
  Report Type: Spontaneous
  Country: US (occurrence: US)
  Receive Date: 20200330
  Receipt Date: 20200330
  Transmission Date: 20200409
  Serious: Yes (Hospitalization, Disabling)
  Sender: FDA-Public Use
  Company Number: None

PATIENT
  Age: 34 Year
  Sex: Female
  Weight: 57.15 kg

DRUGS (1)
  1. MISOPROSTOL. [Suspect]
     Active Substance: MISOPROSTOL
     Indication: INDUCED LABOUR
     Dates: start: 20190801, end: 20190801

REACTIONS (3)
  - Foetal heart rate decreased [None]
  - Maternal drugs affecting foetus [None]
  - Uterine hyperstimulation [None]

NARRATIVE: CASE EVENT DATE: 20190801
